FAERS Safety Report 14861267 (Version 1)
Quarter: 2018Q2

REPORT INFORMATION
  Report Type: Spontaneous
  Country: US (occurrence: US)
  Receive Date: 20180508
  Receipt Date: 20180508
  Transmission Date: 20180711
  Serious: Yes (Other)
  Sender: FDA-Public Use
  Company Number: US-JNJFOC-20180503637

PATIENT
  Sex: Female
  Weight: 77.11 kg

DRUGS (3)
  1. TOPAMAX [Suspect]
     Active Substance: TOPIRAMATE
     Indication: EPILEPSY
     Route: 048
  2. TOPAMAX [Suspect]
     Active Substance: TOPIRAMATE
     Indication: EPILEPSY
     Route: 048
  3. TOPAMAX [Suspect]
     Active Substance: TOPIRAMATE
     Indication: EPILEPSY
     Dosage: 2001 OR 2002
     Route: 048

REACTIONS (4)
  - Road traffic accident [Unknown]
  - Weight increased [Unknown]
  - Large intestine polyp [Unknown]
  - Visual impairment [Unknown]

NARRATIVE: CASE EVENT DATE: 2011
